FAERS Safety Report 9297156 (Version 1)
Quarter: 2013Q2

REPORT INFORMATION
  Report Type: Spontaneous
  Country: DE (occurrence: DE)
  Receive Date: 20130520
  Receipt Date: 20130520
  Transmission Date: 20140414
  Serious: Yes (Hospitalization, Congenital Anomaly)
  Sender: FDA-Public Use
  Company Number: DE-ROCHE-1224205

PATIENT
  Sex: Male

DRUGS (3)
  1. DIAZEPAM [Suspect]
     Indication: PRODUCT USED FOR UNKNOWN INDICATION
     Route: 064
  2. GYNIPRAL [Concomitant]
     Route: 065
  3. DYDROGESTERONE [Concomitant]
     Route: 065

REACTIONS (6)
  - Cleft lip and palate [Unknown]
  - Renal hypoplasia [Unknown]
  - Atrial septal defect [Unknown]
  - Acoustic stimulation tests abnormal [Unknown]
  - Feeding disorder neonatal [Recovered/Resolved]
  - Maternal exposure timing unspecified [Unknown]
